FAERS Safety Report 17355412 (Version 1)
Quarter: 2020Q1

REPORT INFORMATION
  Report Type: Spontaneous
  Country: IT (occurrence: IT)
  Receive Date: 20200131
  Receipt Date: 20200131
  Transmission Date: 20200409
  Serious: Yes (Death)
  Sender: FDA-Public Use
  Company Number: IT-TASMAN PHARMA, INC.-2020TSM00009

PATIENT
  Age: 40 Year
  Sex: Male

DRUGS (11)
  1. HALOPERIDOL. [Suspect]
     Active Substance: HALOPERIDOL
     Dosage: 5 MG, 1X/DAY
     Route: 048
  2. CLOZAPINE. [Suspect]
     Active Substance: CLOZAPINE
     Dosage: 400 MG (TOTAL/DAY: 200 MG, THEN 100 MG, THEN 100 MG)
     Route: 048
  3. CLOZAPINE. [Suspect]
     Active Substance: CLOZAPINE
     Indication: BIPOLAR I DISORDER
     Dosage: 400 MG, 1X/DAY
     Route: 048
  4. HALOPERIDOL. [Suspect]
     Active Substance: HALOPERIDOL
     Indication: BIPOLAR I DISORDER
     Dosage: 15 MG, ONCE
     Route: 042
  5. HALOPERIDOL. [Suspect]
     Active Substance: HALOPERIDOL
     Dosage: 5 MG, 2X/DAY
     Route: 048
  6. PROMAZINE [Suspect]
     Active Substance: PROMAZINE
     Indication: BIPOLAR I DISORDER
     Dosage: 60 MG, 1X/DAY (AT NIGHT)
     Route: 048
  7. PROMAZINE [Suspect]
     Active Substance: PROMAZINE
     Dosage: 60 MG, 2X/DAY
     Route: 048
  8. SODIUM VALPROATE [Suspect]
     Active Substance: VALPROATE SODIUM
     Indication: BIPOLAR I DISORDER
     Dosage: 500 MG, 3X/DAY
     Route: 048
  9. FLUVOXAMINE [Concomitant]
     Active Substance: FLUVOXAMINE
     Dosage: 200 MG, 1X/DAY
     Route: 048
  10. CLOZAPINE. [Suspect]
     Active Substance: CLOZAPINE
     Dosage: 100 MG, 1X/DAY
     Route: 048
  11. CLOZAPINE. [Suspect]
     Active Substance: CLOZAPINE
     Dosage: 100 MG, 3X/DAY
     Route: 048

REACTIONS (4)
  - Cardiac arrest [Fatal]
  - Syncope [Fatal]
  - Drug interaction [Fatal]
  - Head injury [Fatal]
